FAERS Safety Report 18161197 (Version 1)
Quarter: 2020Q3

REPORT INFORMATION
  Report Type: Spontaneous
  Country: GB (occurrence: GB)
  Receive Date: 20200818
  Receipt Date: 20200818
  Transmission Date: 20201103
  Serious: Yes (Other)
  Sender: FDA-Public Use
  Company Number: GB-TEVA-2020-GB-1814319

PATIENT

DRUGS (1)
  1. CLONAZEPAM. [Suspect]
     Active Substance: CLONAZEPAM
     Dosage: 4 MG
     Route: 065

REACTIONS (52)
  - Sudden onset of sleep [Unknown]
  - Respiratory rate decreased [Unknown]
  - Headache [Unknown]
  - Dysuria [Unknown]
  - Skin odour abnormal [Unknown]
  - Abdominal discomfort [Recovered/Resolved]
  - Intrusive thoughts [Unknown]
  - Faeces discoloured [Unknown]
  - Dysgeusia [Unknown]
  - Rash [Unknown]
  - Skin exfoliation [Unknown]
  - Heart rate decreased [Unknown]
  - Petechiae [Unknown]
  - Speech disorder [Unknown]
  - Vision blurred [Unknown]
  - Skin atrophy [Unknown]
  - Abdominal pain upper [Recovered/Resolved]
  - Coma [Unknown]
  - Haematochezia [Unknown]
  - Abulia [Unknown]
  - Thinking abnormal [Unknown]
  - Paraesthesia [Unknown]
  - Heart rate irregular [Unknown]
  - Mouth haemorrhage [Unknown]
  - Disorientation [Unknown]
  - Self esteem decreased [Unknown]
  - Erythema [Unknown]
  - Chest pain [Unknown]
  - Sputum discoloured [Unknown]
  - Mental disorder [Unknown]
  - Dry mouth [Unknown]
  - Burn oral cavity [Unknown]
  - Cold sweat [Unknown]
  - Nasal odour [Unknown]
  - Foaming at mouth [Unknown]
  - Contusion [Unknown]
  - Muscle twitching [Unknown]
  - Rhinorrhoea [Unknown]
  - Salivary hypersecretion [Unknown]
  - Pain in extremity [Unknown]
  - Yellow skin [Unknown]
  - Tremor [Unknown]
  - Abnormal loss of weight [Unknown]
  - Confusional state [Unknown]
  - Dependent personality disorder [Unknown]
  - Nightmare [Unknown]
  - Reaction to excipient [Unknown]
  - Seborrhoea [Unknown]
  - Flatulence [Unknown]
  - Diarrhoea [Unknown]
  - Solar lentigo [Unknown]
  - Neglect of personal appearance [Unknown]
